FAERS Safety Report 8191126-8 (Version None)
Quarter: 2012Q1

REPORT INFORMATION
  Report Type: 
  Country: None (occurrence: None)
  Receive Date: 20120307
  Receipt Date: 20120301
  Transmission Date: 20120608
  Serious: Yes (Other)
  Sender: FDA-Public Use
  Company Number: JP-GLAXOSMITHKLINE-B0784423A

PATIENT
  Sex: Female

DRUGS (4)
  1. MEQUITAZINE [Concomitant]
     Dosage: 4IUAX PER DAY
     Route: 048
     Dates: start: 20120220, end: 20120223
  2. RELENZA [Suspect]
     Indication: INFLUENZA
     Dosage: 20MG PER DAY
     Route: 055
     Dates: start: 20120219, end: 20120222
  3. CARBOCISTEINE [Concomitant]
     Dosage: 8IUAX PER DAY
     Route: 048
     Dates: start: 20120220, end: 20120223
  4. ACETAMINOPHEN [Concomitant]
     Route: 065

REACTIONS (4)
  - IRRITABILITY [None]
  - AGGRESSION [None]
  - AGITATION [None]
  - SELF INJURIOUS BEHAVIOUR [None]
